FAERS Safety Report 7742254-X (Version None)
Quarter: 2011Q3

REPORT INFORMATION
  Report Type: 
  Country: None (occurrence: None)
  Receive Date: 20110912
  Receipt Date: 20110831
  Transmission Date: 20111222
  Serious: Yes (Hospitalization)
  Sender: FDA-Public Use
  Company Number: US-BAYER-2011-083173

PATIENT
  Age: 35 Year
  Sex: Female
  Weight: 133.79 kg

DRUGS (3)
  1. LO/OVRAL [Concomitant]
  2. YAZ [Suspect]
     Dosage: UNK
     Dates: start: 20060101, end: 20070101
  3. PHENTERMINE [Concomitant]

REACTIONS (3)
  - CHOLECYSTECTOMY [None]
  - CHOLELITHIASIS [None]
  - CHOLECYSTITIS CHRONIC [None]
